FAERS Safety Report 7386919-0 (Version None)
Quarter: 2011Q1

REPORT INFORMATION
  Report Type: 
  Country: None (occurrence: None)
  Receive Date: 20110331
  Receipt Date: 20110322
  Transmission Date: 20110831
  Serious: Yes (Other)
  Sender: FDA-Public Use
  Company Number: US-ASTRAZENECA-2011SE13779

PATIENT
  Age: 77 Year
  Sex: Male
  Weight: 86.2 kg

DRUGS (3)
  1. COUMADIN [Concomitant]
  2. TOPROL-XL [Suspect]
     Indication: HYPERTENSION
     Route: 048
     Dates: start: 20050301, end: 20110301
  3. SIMVASTATIN [Concomitant]

REACTIONS (8)
  - AMNESIA [None]
  - FEAR OF FALLING [None]
  - ATRIAL FIBRILLATION [None]
  - SOMNOLENCE [None]
  - FALL [None]
  - NIGHTMARE [None]
  - DRY MOUTH [None]
  - CONFUSIONAL STATE [None]
